FAERS Safety Report 15776379 (Version 1)
Quarter: 2018Q4

REPORT INFORMATION
  Report Type: Spontaneous
  Country: US (occurrence: US)
  Receive Date: 20181231
  Receipt Date: 20181231
  Transmission Date: 20190205
  Serious: No
  Sender: FDA-Public Use
  Company Number: US-HQ SPECIALTY-US-2018INT000174

PATIENT

DRUGS (1)
  1. CISPLATIN. [Suspect]
     Active Substance: CISPLATIN
     Indication: METASTATIC NEOPLASM
     Dosage: UNK (ONCE EVERY WEEK FOR THREE WEEKS)
     Route: 065
     Dates: start: 201706

REACTIONS (7)
  - Hypersensitivity [Unknown]
  - Vomiting [Unknown]
  - Constipation [Unknown]
  - Incoherent [Unknown]
  - Pruritus [Unknown]
  - Feeling abnormal [Unknown]
  - Nausea [Unknown]
